FAERS Safety Report 14419799 (Version 1)
Quarter: 2018Q1

REPORT INFORMATION
  Report Type: Spontaneous
  Country: US (occurrence: US)
  Receive Date: 20180122
  Receipt Date: 20180122
  Transmission Date: 20180509
  Serious: No
  Sender: FDA-Public Use
  Company Number: US-PFIZER INC-2018025200

PATIENT
  Age: 34 Year
  Sex: Female
  Weight: 80.28 kg

DRUGS (1)
  1. EFFEXOR XR [Suspect]
     Active Substance: VENLAFAXINE HYDROCHLORIDE
     Dosage: 4 DF, 1X/DAY (PRODUCT DOSE 4 CAPSULES ONCE DAILY)

REACTIONS (1)
  - Drug intolerance [Unknown]
